FAERS Safety Report 11583717 (Version 1)
Quarter: 2015Q4

REPORT INFORMATION
  Report Type: Spontaneous
  Country: US (occurrence: US)
  Receive Date: 20151001
  Receipt Date: 20151001
  Transmission Date: 20160304
  Serious: No
  Sender: FDA-Public Use
  Company Number: US-BAYER-2015-434718

PATIENT
  Age: 81 Year
  Sex: Female
  Weight: 62.59 kg

DRUGS (4)
  1. ONE A DAY WOMENS VITACRAVES GUMMIES [Concomitant]
     Active Substance: MINERALS\VITAMINS
     Indication: VITAMIN SUPPLEMENTATION
  2. ALEVE [Suspect]
     Active Substance: NAPROXEN SODIUM
     Indication: ARTHRALGIA
     Dosage: UNK, QD
     Route: 048
     Dates: start: 201506, end: 201509
  3. COQ10 [Concomitant]
     Active Substance: UBIDECARENONE
  4. FLAXSEED [Concomitant]
     Active Substance: FLAX SEED

REACTIONS (2)
  - Drug ineffective [None]
  - Product use issue [None]

NARRATIVE: CASE EVENT DATE: 201506
